FAERS Safety Report 9012912 (Version 1)
Quarter: 2013Q1

REPORT INFORMATION
  Report Type: Spontaneous
  Country: US (occurrence: US)
  Receive Date: 20130114
  Receipt Date: 20130114
  Transmission Date: 20140127
  Serious: No
  Sender: FDA-Public Use
  Company Number: US-VERTEX PHARMACEUTICALS INC.-2013-000510

PATIENT
  Age: 46 Year
  Sex: Male
  Weight: 122 kg

DRUGS (3)
  1. INCIVEK [Suspect]
     Indication: HEPATITIS C
     Dosage: 750 MG, TID
     Route: 048
     Dates: start: 20130102
  2. RIBAVIRIN [Suspect]
     Indication: HEPATITIS C
     Dosage: 800MG QAM AND 600MG QPM
     Route: 048
     Dates: start: 20130102
  3. PEGINTERFERON [Suspect]
     Indication: HEPATITIS C
     Dosage: UNK, QW
     Route: 058
     Dates: start: 20130102

REACTIONS (7)
  - Influenza like illness [Recovered/Resolved]
  - Pain [Recovered/Resolved]
  - Fatigue [Recovered/Resolved]
  - Rash [Recovered/Resolved]
  - Anorectal discomfort [Not Recovered/Not Resolved]
  - Vomiting [Not Recovered/Not Resolved]
  - Rectal haemorrhage [Not Recovered/Not Resolved]
